FAERS Safety Report 15648094 (Version 1)
Quarter: 2018Q4

REPORT INFORMATION
  Report Type: Spontaneous
  Country: US (occurrence: US)
  Receive Date: 20181122
  Receipt Date: 20181122
  Transmission Date: 20190205
  Serious: No
  Sender: FDA-Public Use
  Company Number: US-JNJFOC-20181108188

PATIENT
  Sex: Female
  Weight: 58.97 kg

DRUGS (2)
  1. INVEGA SUSTENNA [Suspect]
     Active Substance: PALIPERIDONE PALMITATE
     Indication: SCHIZOAFFECTIVE DISORDER
     Route: 030
     Dates: start: 20181005, end: 2018
  2. COGENTIN [Concomitant]
     Active Substance: BENZTROPINE MESYLATE
     Route: 065

REACTIONS (5)
  - Insomnia [Unknown]
  - Discomfort [Unknown]
  - Psychomotor skills impaired [Unknown]
  - Impaired self-care [Unknown]
  - Tremor [Unknown]
